FAERS Safety Report 15837561 (Version 2)
Quarter: 2019Q1

REPORT INFORMATION
  Report Type: Spontaneous
  Country: DE (occurrence: DE)
  Receive Date: 20190117
  Receipt Date: 20190121
  Transmission Date: 20190417
  Serious: Yes (Other)
  Sender: FDA-Public Use
  Company Number: DE-IPSEN BIOPHARMACEUTICALS, INC.-2019-00686

PATIENT
  Age: 79 Year
  Sex: Male
  Weight: 73 kg

DRUGS (40)
  1. FLUOROURACIL. [Suspect]
     Active Substance: FLUOROURACIL
     Route: 042
  2. FLUOROURACIL. [Suspect]
     Active Substance: FLUOROURACIL
     Route: 042
  3. FOLINIC ACID [Suspect]
     Active Substance: LEUCOVORIN
     Route: 065
  4. DUODART [Concomitant]
     Active Substance: DUTASTERIDE\TAMSULOSIN
     Indication: BENIGN PROSTATIC HYPERPLASIA
     Route: 048
  5. MUCOFALK [Concomitant]
     Active Substance: HERBALS\PLANTAGO OVATA LEAF
     Dates: start: 20180801, end: 20181002
  6. DELIX [Concomitant]
     Indication: HYPERTENSION
     Dosage: 5 MG, QD AND BID, ORALLY
     Route: 048
  7. SULFAMETHOXAZOLE [Concomitant]
     Active Substance: SULFAMETHOXAZOLE
     Indication: URINARY TRACT INFECTION
     Dates: start: 20180614
  8. PANITUMUMAB [Suspect]
     Active Substance: PANITUMUMAB
     Route: 042
  9. FLUOROURACIL. [Suspect]
     Active Substance: FLUOROURACIL
     Indication: COLORECTAL CANCER METASTATIC
     Route: 042
  10. FLUOROURACIL. [Suspect]
     Active Substance: FLUOROURACIL
     Route: 042
  11. MOVICOL [Concomitant]
     Active Substance: POLYETHYLENE GLYCOL 3350\POTASSIUM CHLORIDE\SODIUM BICARBONATE\SODIUM CHLORIDE
     Indication: CONSTIPATION PROPHYLAXIS
     Route: 048
  12. PANITUMUMAB [Suspect]
     Active Substance: PANITUMUMAB
     Route: 042
  13. PANITUMUMAB [Suspect]
     Active Substance: PANITUMUMAB
     Route: 042
  14. FLOXAL [Concomitant]
     Active Substance: OFLOXACIN
     Indication: CONJUNCTIVITIS
     Dosage: EYE OINTMENT
     Dates: start: 20180919, end: 20181009
  15. ZOPICLONE [Concomitant]
     Active Substance: ZOPICLONE
     Indication: SLEEP DISORDER
     Route: 048
  16. LOPERAMIDE [Concomitant]
     Active Substance: LOPERAMIDE
     Dates: start: 20180711, end: 20181002
  17. FLOXAL [Concomitant]
     Active Substance: OFLOXACIN
     Dosage: EYE OINTMENT
  18. CANDIO-HERMAL [Concomitant]
     Active Substance: NYSTATIN
     Indication: PROPHYLAXIS
  19. GLANDOMED [Concomitant]
     Indication: STOMATITIS
  20. DERMATOP [Concomitant]
     Active Substance: PREDNICARBATE
     Dates: start: 20180801, end: 20190108
  21. DELIX [Concomitant]
     Route: 048
  22. FUSIDIC ACID [Concomitant]
     Active Substance: FUSIDIC ACID
     Indication: PARONYCHIA
     Dates: start: 20181002, end: 20190108
  23. MAGNESIUM [Concomitant]
     Active Substance: MAGNESIUM
     Indication: HYPOMAGNESAEMIA
     Route: 048
     Dates: start: 20180821
  24. ONIVYDE [Suspect]
     Active Substance: IRINOTECAN HYDROCHLORIDE
     Indication: OFF LABEL USE
     Route: 065
  25. MINOCYCLINE [Concomitant]
     Active Substance: MINOCYCLINE\MINOCYCLINE HYDROCHLORIDE
     Indication: DERMATITIS ACNEIFORM
     Route: 048
     Dates: start: 20180801, end: 20190108
  26. HISTOACRYL [Concomitant]
     Active Substance: ENBUCRILATE
     Indication: PARONYCHIA
     Route: 061
     Dates: start: 20181120
  27. MCP-RATIOPHARM [Concomitant]
     Active Substance: METOCLOPRAMIDE HYDROCHLORIDE
     Indication: NAUSEA
  28. NOVAMINSULFON-RATIOPHARM [Concomitant]
     Active Substance: METAMIZOLE
     Indication: PAIN
     Route: 048
  29. AKNEMYCIN [Concomitant]
     Indication: DERMATITIS ACNEIFORM
     Route: 061
     Dates: start: 20180801, end: 20190108
  30. ONIVYDE [Suspect]
     Active Substance: IRINOTECAN HYDROCHLORIDE
     Indication: COLORECTAL CANCER METASTATIC
     Route: 065
  31. PANITUMUMAB [Suspect]
     Active Substance: PANITUMUMAB
     Indication: COLORECTAL CANCER METASTATIC
     Route: 042
  32. FLUOROURACIL. [Suspect]
     Active Substance: FLUOROURACIL
     Route: 042
  33. FLUOROURACIL. [Suspect]
     Active Substance: FLUOROURACIL
     Route: 042
  34. FLUOROURACIL. [Suspect]
     Active Substance: FLUOROURACIL
     Route: 042
  35. FLUOROURACIL. [Suspect]
     Active Substance: FLUOROURACIL
     Route: 042
  36. FOLINIC ACID [Suspect]
     Active Substance: LEUCOVORIN
     Indication: COLORECTAL CANCER METASTATIC
     Route: 065
  37. MAGNESIUM VERLA [Concomitant]
     Active Substance: MAGNESIUM
     Dates: start: 20181203
  38. PANTOZOL [Concomitant]
     Active Substance: PANTOPRAZOLE SODIUM
     Indication: PROPHYLAXIS
     Route: 048
     Dates: start: 201805
  39. RIVANOL [Concomitant]
     Active Substance: ETHACRIDINE LACTATE
     Indication: PARONYCHIA
     Dosage: UNKNOWN DOSEAGE
     Dates: start: 20181120, end: 20190108
  40. EDOXABAN TOSILATE [Concomitant]
     Active Substance: EDOXABAN TOSYLATE
     Indication: CARDIAC ABLATION
     Route: 048
     Dates: start: 201708

REACTIONS (1)
  - Ophthalmic herpes zoster [Recovered/Resolved]

NARRATIVE: CASE EVENT DATE: 20181211
